FAERS Safety Report 9056317 (Version 1)
Quarter: 2013Q1

REPORT INFORMATION
  Report Type: Report from Study
  Country: CA (occurrence: CA)
  Receive Date: 20130204
  Receipt Date: 20130204
  Transmission Date: 20140127
  Serious: Yes (Other)
  Sender: FDA-Public Use
  Company Number: CA-JNJFOC-20121104235

PATIENT
  Age: 31 None
  Sex: Female
  Weight: 58 kg

DRUGS (1)
  1. REMICADE [Suspect]
     Indication: CROHN^S DISEASE
     Dosage: (52 WEEKS)
     Route: 042
     Dates: start: 20110204

REACTIONS (4)
  - Lung infection [Unknown]
  - Infection [Unknown]
  - Rheumatoid arthritis [Unknown]
  - Skin neoplasm bleeding [Unknown]
